FAERS Safety Report 8844564 (Version 2)
Quarter: 2013Q3

REPORT INFORMATION
  Report Type: Report from Study
  Country: JP (occurrence: JP)
  Receive Date: 20121017
  Receipt Date: 20130820
  Transmission Date: 20140515
  Serious: Yes (Other)
  Sender: FDA-Public Use
  Company Number: JP-VERTEX PHARMACEUTICAL INC.-2012-020503

PATIENT
  Age: 65 Year
  Sex: Male

DRUGS (10)
  1. VX-950 (TELAPREVIR) [Suspect]
     Indication: CHRONIC HEPATITIS C
     Dosage: 2250 MG, QD
     Route: 048
     Dates: start: 20120702, end: 20120705
  2. VX-950 (TELAPREVIR) [Suspect]
     Dosage: 750 MG, QD
     Route: 048
     Dates: start: 20120706, end: 20120716
  3. VX-950 (TELAPREVIR) [Suspect]
     Dosage: 1500 MG, QD
     Route: 048
     Dates: start: 20120717, end: 20120813
  4. REBETOL [Suspect]
     Indication: CHRONIC HEPATITIS C
     Dosage: 800 MG, QD
     Route: 048
     Dates: start: 20120702, end: 20120706
  5. REBETOL [Suspect]
     Dosage: 400 MG, QD
     Route: 048
     Dates: start: 20120707, end: 20120708
  6. REBETOL [Suspect]
     Dosage: 600 MG, QD
     Route: 048
     Dates: start: 20120709, end: 20120713
  7. REBETOL [Suspect]
     Dosage: 800 MG, QD
     Route: 048
     Dates: start: 20120714
  8. PEGINTRON [Suspect]
     Indication: CHRONIC HEPATITIS C
     Dosage: 100 ?G, QW
     Route: 058
     Dates: start: 20120702
  9. TALION [Concomitant]
     Dosage: 20 MG, QD
     Route: 048
     Dates: start: 20120702
  10. RIKKUNSHITO [Concomitant]
     Dosage: 7.5 G, QD
     Route: 048
     Dates: start: 20120702, end: 20120909

REACTIONS (2)
  - Retinopathy [Not Recovered/Not Resolved]
  - Hyperuricaemia [Recovered/Resolved]
